FAERS Safety Report 7971689 (Version 3)
Quarter: 2013Q3

REPORT INFORMATION
  Report Type: Report from Study
  Country: US (occurrence: US)
  Receive Date: 20110602
  Receipt Date: 20130927
  Transmission Date: 20140515
  Serious: Yes (Death, Life-Threatening, Hospitalization)
  Sender: FDA-Public Use
  Company Number: US-JNJFOC-20110509824

PATIENT
  Age: 66 Year
  Sex: Female
  Weight: 62.4 kg

DRUGS (6)
  1. REMICADE [Suspect]
     Indication: CROHN^S DISEASE
     Route: 042
     Dates: start: 19990323
  2. REMICADE [Suspect]
     Indication: CROHN^S DISEASE
     Route: 042
     Dates: start: 19990608, end: 19990608
  3. AZATHIOPRINE [Suspect]
     Indication: CROHN^S DISEASE
     Route: 065
     Dates: start: 199711, end: 199712
  4. PREDNISONE [Concomitant]
     Indication: CROHN^S DISEASE
     Route: 048
     Dates: start: 199909
  5. PENTASA [Concomitant]
     Indication: CROHN^S DISEASE
     Route: 048
     Dates: start: 199909
  6. FLAGYL [Concomitant]
     Indication: CROHN^S DISEASE
     Route: 048
     Dates: start: 199909

REACTIONS (1)
  - Lung cancer metastatic [Fatal]
